FAERS Safety Report 7227882-2 (Version None)
Quarter: 2011Q1

REPORT INFORMATION
  Report Type: 
  Country: None (occurrence: None)
  Receive Date: 20110112
  Receipt Date: 20110112
  Transmission Date: 20110831
  Serious: No
  Sender: FDA-Public Use
  Company Number: None

PATIENT
  Age: 50 Year
  Sex: Male
  Weight: 80.7403 kg

DRUGS (1)
  1. MORPHINE [Suspect]
     Indication: PROCEDURAL PAIN
     Dosage: 4MG ONCE IV
     Route: 042
     Dates: start: 20101229, end: 20101229

REACTIONS (2)
  - INJECTION SITE ERYTHEMA [None]
  - INJECTION SITE URTICARIA [None]
